FAERS Safety Report 6641828-7 (Version None)
Quarter: 2010Q1

REPORT INFORMATION
  Report Type: 
  Country: None (occurrence: None)
  Receive Date: 20100316
  Receipt Date: 20100308
  Transmission Date: 20100710
  Serious: Yes (Hospitalization)
  Sender: FDA-Public Use
  Company Number: 2010AL001398

PATIENT
  Age: 48 Year
  Sex: Male
  Weight: 95.0286 kg

DRUGS (16)
  1. OXYCODONE HCL [Suspect]
     Indication: DRUG USE FOR UNKNOWN INDICATION
     Dosage: PO
     Route: 048
     Dates: start: 20000101
  2. CELECOXIB [Concomitant]
  3. IBUPROFEN/ NAPROXEN [Concomitant]
  4. MS CONTIN [Concomitant]
  5. PERCOCET [Concomitant]
  6. ACTOS [Concomitant]
  7. METFORMIN (GLUCOPHAGE) [Concomitant]
  8. HYDROCODONE [Concomitant]
  9. LISINOPRIL [Concomitant]
  10. ASPIRIN [Concomitant]
  11. GABAPENTIN [Concomitant]
  12. NIASPAN [Concomitant]
  13. ZOLPIDEM [Concomitant]
  14. PLETAL [Concomitant]
  15. VYTORIN [Concomitant]
  16. IBUPROFEN [Concomitant]

REACTIONS (4)
  - BLOOD GLUCOSE INCREASED [None]
  - CONVULSION [None]
  - DRUG WITHDRAWAL SYNDROME [None]
  - RENAL FAILURE [None]
